FAERS Safety Report 5825923-8 (Version None)
Quarter: 2008Q3

REPORT INFORMATION
  Report Type: 
  Country: None (occurrence: None)
  Receive Date: 20080729
  Receipt Date: 20080721
  Transmission Date: 20090109
  Serious: Yes (Other)
  Sender: FDA-Public Use
  Company Number: PHHY2008GB15383

PATIENT
  Age: 52 Year

DRUGS (6)
  1. ZOLEDRONIC ACID [Suspect]
     Dosage: UNK
     Dates: start: 20080622
  2. ARTHROTEC [Concomitant]
  3. CALCICHEW [Concomitant]
  4. ACETAMINOPHEN W/ CODEINE [Concomitant]
  5. LYRICA [Concomitant]
  6. TRAMADOL HCL [Concomitant]

REACTIONS (1)
  - PSORIATIC ARTHROPATHY [None]
